FAERS Safety Report 7580371-8 (Version None)
Quarter: 2011Q2

REPORT INFORMATION
  Report Type: 
  Country: None (occurrence: None)
  Receive Date: 20110629
  Receipt Date: 20110617
  Transmission Date: 20111010
  Serious: Yes (Hospitalization)
  Sender: FDA-Public Use
  Company Number: DE-ROCHE-785870

PATIENT
  Sex: Female
  Weight: 68 kg

DRUGS (5)
  1. GRANISETRON [Concomitant]
     Indication: VOMITING
     Route: 042
     Dates: start: 20110203, end: 20110303
  2. PACLITAXEL [Concomitant]
     Indication: METASTATIC BRONCHIAL CARCINOMA
     Route: 042
     Dates: start: 20110203, end: 20110303
  3. CARBOPLATIN [Concomitant]
     Indication: METASTATIC BRONCHIAL CARCINOMA
     Dosage: 6 AUC
     Route: 042
     Dates: start: 20110203, end: 20110303
  4. AVASTIN [Suspect]
     Indication: METASTATIC BRONCHIAL CARCINOMA
     Route: 042
     Dates: start: 20110203
  5. DEXAMETHASONE [Concomitant]
     Route: 042
     Dates: start: 20110203, end: 20110303

REACTIONS (2)
  - PERITONITIS [None]
  - ILEAL PERFORATION [None]
